FAERS Safety Report 26116045 (Version 1)
Quarter: 2025Q4

REPORT INFORMATION
  Report Type: Spontaneous
  Country: EU (occurrence: EU)
  Receive Date: 20251203
  Receipt Date: 20251203
  Transmission Date: 20260118
  Serious: Yes (Disabling)
  Sender: GENMAB
  Company Number: EU-ABBVIE-6568981

PATIENT
  Sex: Male

DRUGS (1)
  1. EPCORITAMAB [Suspect]
     Active Substance: EPCORITAMAB
     Indication: Diffuse large B-cell lymphoma
     Dosage: UNK
     Route: 058

REACTIONS (3)
  - Physical disability [Unknown]
  - Fatigue [Unknown]
  - Asthenia [Unknown]
